FAERS Safety Report 21962498 (Version 1)
Quarter: 2023Q1

REPORT INFORMATION
  Report Type: Report from Study
  Country: IL (occurrence: IL)
  Receive Date: 20230207
  Receipt Date: 20230207
  Transmission Date: 20230417
  Serious: Yes (Death, Hospitalization)
  Sender: FDA-Public Use
  Company Number: IL-ABBVIE-4288409

PATIENT
  Sex: Female

DRUGS (3)
  1. CARBIDOPA\LEVODOPA [Suspect]
     Active Substance: CARBIDOPA\LEVODOPA
     Indication: Parkinson^s disease
     Route: 050
     Dates: start: 20131120
  2. CARBIDOPA\LEVODOPA [Suspect]
     Active Substance: CARBIDOPA\LEVODOPA
     Dosage: CURRENT: MORNING 1.0 ML, CONTINUOUS DAY 4.0 ML/HOUR, EXTRA 2.5 ML THERAPY DURATION 16 H
     Route: 050
     Dates: end: 20230205
  3. CARBIDOPA\LEVODOPA [Suspect]
     Active Substance: CARBIDOPA\LEVODOPA
     Dosage: CURRENT: MORNING 1.0 ML, CONTINUOUS DAY 4.0 ML/HOUR, EXTRA 2.5 ML THERAPY DURATION 16 H
     Route: 050

REACTIONS (4)
  - General physical health deterioration [Fatal]
  - Haemoglobin decreased [Unknown]
  - Asthenia [Unknown]
  - Dyspnoea [Unknown]
